FAERS Safety Report 13457170 (Version 1)
Quarter: 2017Q2

REPORT INFORMATION
  Report Type: Spontaneous
  Country: US (occurrence: US)
  Receive Date: 20170418
  Receipt Date: 20170418
  Transmission Date: 20170830
  Serious: Yes (Other)
  Sender: FDA-Public Use
  Company Number: None

PATIENT
  Age: 58 Year
  Sex: Female
  Weight: 58.5 kg

DRUGS (1)
  1. DONNA KARAN CASHMERE DEODORANT/ANTIPERSPIRANT [Suspect]
     Active Substance: ALUMINUM ZIRCONIUM TETRACHLOROHYDREX GLY
     Indication: PRODUCT USED FOR UNKNOWN INDICATION
     Dosage: QUANTITY:1 CONTAINER;?
     Route: 061

REACTIONS (2)
  - No reaction on previous exposure to drug [None]
  - Rash [None]

NARRATIVE: CASE EVENT DATE: 20161001
